FAERS Safety Report 11111145 (Version 2)
Quarter: 2015Q2

REPORT INFORMATION
  Report Type: Report from Study
  Country: CA (occurrence: CA)
  Receive Date: 20150513
  Receipt Date: 20150514
  Transmission Date: 20150821
  Serious: Yes (Death, Hospitalization, Other)
  Sender: FDA-Public Use
  Company Number: CA-AMGEN-CANCT2015035756

PATIENT
  Age: 77 Year
  Sex: Male
  Weight: 81 kg

DRUGS (21)
  1. CARFILZOMIB [Suspect]
     Active Substance: CARFILZOMIB
     Indication: PLASMA CELL MYELOMA
     Dosage: 56 MG/M2, AS NECESSARY
     Route: 042
     Dates: start: 20130402, end: 20150325
  2. DEXAMETHASONE. [Suspect]
     Active Substance: DEXAMETHASONE
     Indication: PLASMA CELL MYELOMA
     Dosage: 20 MG, PER CHEMO REGIM
     Route: 048
     Dates: start: 20130402, end: 20150304
  3. GRAVOL [Concomitant]
     Active Substance: DIMENHYDRINATE
     Indication: ABDOMINAL DISCOMFORT
     Dosage: 1 OTHER, AS NECESSARY
     Route: 048
     Dates: start: 20131112, end: 20150330
  4. TUMS                               /00193601/ [Concomitant]
     Active Substance: CALCIUM CARBONATE\MAGNESIUM CARBONATE\MAGNESIUM TRISILICATE
     Indication: DYSPEPSIA
     Dosage: 15 MG, AS NECESSARY
     Route: 048
     Dates: start: 201401
  5. CIPRALEX [Concomitant]
     Active Substance: ESCITALOPRAM OXALATE
     Indication: ANXIETY
     Dosage: 5 MG, QD
     Route: 048
     Dates: start: 20140611
  6. IMODIUM [Concomitant]
     Active Substance: LOPERAMIDE HYDROCHLORIDE
     Indication: DIARRHOEA
     Dosage: 2 OTHER, AS NECESSARY
     Route: 048
     Dates: start: 20150106, end: 20150415
  7. BIOTENE                            /03475601/ [Concomitant]
     Indication: DRY MOUTH
     Dosage: 1 OTHER, AS NECESSARY
     Route: 050
     Dates: start: 20150126
  8. POTASSIUM PHOSPHATE [Concomitant]
     Active Substance: POTASSIUM PHOSPHATE
     Indication: PNEUMONIA
     Dosage: 30 MMOL, UNK
     Route: 042
     Dates: start: 20150415, end: 20150415
  9. WARFARIN [Concomitant]
     Active Substance: WARFARIN
     Indication: ATRIAL FIBRILLATION
     Dosage: 5 MG, AS NECESSARY
     Route: 048
     Dates: start: 20131113, end: 20150401
  10. ZOPICLONE [Concomitant]
     Active Substance: ZOPICLONE
     Indication: INSOMNIA
     Dosage: 7.5 MG, AS NECESSARY
     Route: 048
     Dates: start: 20140615, end: 20150416
  11. AVEENO [Concomitant]
     Active Substance: DIMETHICONE\HOMOSALATE\OCTINOXATE\OCTISALATE\TITANIUM DIOXIDE
     Indication: RASH
     Dosage: 1 OTHER, QOD
     Route: 061
     Dates: start: 201501
  12. VALSARTAN. [Concomitant]
     Active Substance: VALSARTAN
     Indication: HYPERTENSION
     Dosage: 80 MG, QD
     Route: 048
     Dates: start: 2005, end: 20150416
  13. INDOMETHACIN                       /00003801/ [Concomitant]
     Active Substance: INDOMETHACIN
     Indication: GOUT
     Dosage: 50 MG, AS NECESSARY
     Route: 048
     Dates: start: 20140506, end: 20150330
  14. ACYCLOVIR                          /00587301/ [Concomitant]
     Active Substance: ACYCLOVIR
     Dosage: 400 MG, QD
     Route: 048
     Dates: start: 20130402
  15. LORAZEPAM. [Concomitant]
     Active Substance: LORAZEPAM
     Indication: ANXIETY
     Dosage: 1 MG, AS NECESSARY
     Route: 048
     Dates: start: 20131112, end: 20150330
  16. LUCENTIS [Concomitant]
     Active Substance: RANIBIZUMAB
     Indication: MACULAR DEGENERATION
     Dosage: 0.05 ML, AS NECESSARY
     Route: 031
     Dates: start: 20141014
  17. CIPRALEX [Concomitant]
     Active Substance: ESCITALOPRAM OXALATE
     Indication: ANXIETY
     Dosage: 5 MG, QD
     Route: 048
     Dates: start: 20150312, end: 20150412
  18. PAMIDRONATE [Concomitant]
     Active Substance: PAMIDRONATE DISODIUM
     Indication: PROPHYLAXIS
     Dosage: 90 MG, AS NECESSARY
     Route: 042
     Dates: start: 20130321, end: 20150210
  19. LANSOPRAZOLE. [Concomitant]
     Active Substance: LANSOPRAZOLE
     Dosage: 30 MG, QD
     Route: 048
     Dates: start: 20140220
  20. METOPROLOL [Concomitant]
     Active Substance: METOPROLOL
     Indication: ATRIAL FIBRILLATION
     Dosage: 12.5 MG, UNK
     Route: 048
     Dates: start: 20140710, end: 20150404
  21. TAMSULOSIN [Concomitant]
     Active Substance: TAMSULOSIN
     Indication: NOCTURIA
     Dosage: 0.4 MG, QID
     Route: 048
     Dates: start: 20150315, end: 20150416

REACTIONS (1)
  - Pneumonia [Fatal]

NARRATIVE: CASE EVENT DATE: 20150328
